FAERS Safety Report 24369396 (Version 1)
Quarter: 2024Q3

REPORT INFORMATION
  Report Type: Report from Study
  Country: US (occurrence: US)
  Receive Date: 20240927
  Receipt Date: 20240927
  Transmission Date: 20241016
  Serious: No
  Sender: ROCHE
  Company Number: US-ROCHE-2295913

PATIENT
  Age: 42 Year
  Sex: Female

DRUGS (13)
  1. LUCENTIS [Suspect]
     Active Substance: RANIBIZUMAB
     Indication: Noninfective chorioretinitis
     Dosage: ANTICIPATED DATE OF TREATMENT: 30/JUN/2023? FREQUENCY TEXT:4-6 WEEK
     Route: 050
     Dates: start: 20190402
  2. LUCENTIS [Suspect]
     Active Substance: RANIBIZUMAB
     Indication: Retinal neovascularisation
  3. VABYSMO [Suspect]
     Active Substance: FARICIMAB-SVOA
     Indication: Noninfective chorioretinitis
     Route: 065
  4. VABYSMO [Suspect]
     Active Substance: FARICIMAB-SVOA
     Indication: Retinal neovascularisation
  5. AVASTIN [Suspect]
     Active Substance: BEVACIZUMAB
     Indication: Noninfective chorioretinitis
     Route: 050
  6. AVASTIN [Suspect]
     Active Substance: BEVACIZUMAB
     Indication: Retinal neovascularisation
  7. REFRESH OPTIVE [Concomitant]
     Active Substance: CARBOXYMETHYLCELLULOSE SODIUM\GLYCERIN
  8. KYLEENA [Concomitant]
     Active Substance: LEVONORGESTREL
  9. ATORVASTATIN [Concomitant]
     Active Substance: ATORVASTATIN
  10. AMLODIPINE BESYLATE [Concomitant]
     Active Substance: AMLODIPINE BESYLATE
  11. WEGOVY [Concomitant]
     Active Substance: SEMAGLUTIDE
  12. VITAMIN D3 [Concomitant]
     Active Substance: CHOLECALCIFEROL
  13. B12 [Concomitant]

REACTIONS (4)
  - Off label use [Unknown]
  - Off label use [Unknown]
  - Foot fracture [Unknown]
  - Hypothyroidism [Unknown]

NARRATIVE: CASE EVENT DATE: 20210801
